FAERS Safety Report 13566222 (Version 1)
Quarter: 2017Q2

REPORT INFORMATION
  Report Type: Spontaneous
  Country: None (occurrence: US)
  Receive Date: 20170519
  Receipt Date: 20170519
  Transmission Date: 20170830
  Serious: Yes (Other)
  Sender: FDA-Public Use
  Company Number: None

PATIENT
  Age: 50 Year
  Sex: Female
  Weight: 96.25 kg

DRUGS (1)
  1. OXYCODONE-ACETAMINOPHEN, 10-325 MG [Suspect]
     Active Substance: ACETAMINOPHEN\OXYCODONE HYDROCHLORIDE

REACTIONS (2)
  - Urticaria [None]
  - Rash generalised [None]

NARRATIVE: CASE EVENT DATE: 20160501
